FAERS Safety Report 17989020 (Version 1)
Quarter: 2020Q3

REPORT INFORMATION
  Report Type: Spontaneous
  Country: US (occurrence: US)
  Receive Date: 20200707
  Receipt Date: 20200707
  Transmission Date: 20201103
  Serious: Yes (Disabling)
  Sender: FDA-Public Use
  Company Number: None

PATIENT
  Age: 37 Year
  Sex: Male
  Weight: 119.25 kg

DRUGS (3)
  1. CYMBALTA [Concomitant]
     Active Substance: DULOXETINE HYDROCHLORIDE
  2. BUPRENORPHINE AND NALOXONE [Suspect]
     Active Substance: BUPRENORPHINE HYDROCHLORIDE\NALOXONE HYDROCHLORIDE
     Indication: DRUG DEPENDENCE
     Dosage: ?          QUANTITY:1.5 SUBLINGUAL FILM;?
     Route: 060
  3. HYDROXYCUT [Concomitant]
     Active Substance: DIETARY SUPPLEMENT

REACTIONS (3)
  - Product substitution issue [None]
  - Withdrawal syndrome [None]
  - Malaise [None]

NARRATIVE: CASE EVENT DATE: 20200305
